FAERS Safety Report 14353134 (Version 1)
Quarter: 2018Q1

REPORT INFORMATION
  Report Type: Spontaneous
  Country: FR (occurrence: FR)
  Receive Date: 20180104
  Receipt Date: 20180104
  Transmission Date: 20180509
  Serious: Yes (Other)
  Sender: FDA-Public Use
  Company Number: FR-MERCK KGAA-2038411

PATIENT
  Age: 52 Year
  Sex: Female
  Weight: 62 kg

DRUGS (1)
  1. NOVOTHYROX [Suspect]
     Active Substance: LEVOTHYROXINE SODIUM
     Indication: THYROIDECTOMY
     Dates: start: 20170309, end: 201709

REACTIONS (19)
  - Tendonitis [Recovering/Resolving]
  - Muscle spasms [Recovering/Resolving]
  - Abdominal pain upper [Recovering/Resolving]
  - Insomnia [Recovering/Resolving]
  - Fatigue [Recovering/Resolving]
  - Formication [Recovering/Resolving]
  - Myalgia [Recovering/Resolving]
  - Visual impairment [Recovering/Resolving]
  - Chest pain [Recovering/Resolving]
  - Nausea [Recovering/Resolving]
  - Memory impairment [Recovering/Resolving]
  - Hyperhidrosis [Recovering/Resolving]
  - Arthralgia [Recovering/Resolving]
  - Thirst [Recovering/Resolving]
  - Abdominal pain [Recovering/Resolving]
  - Contusion [Recovering/Resolving]
  - Acne [Recovering/Resolving]
  - Torticollis [Recovering/Resolving]
  - Weight decreased [Recovering/Resolving]

NARRATIVE: CASE EVENT DATE: 201703
